FAERS Safety Report 25857094 (Version 1)
Quarter: 2025Q3

REPORT INFORMATION
  Report Type: Spontaneous
  Country: ZA (occurrence: ZA)
  Receive Date: 20250929
  Receipt Date: 20250929
  Transmission Date: 20251021
  Serious: Yes (Hospitalization, Other)
  Sender: GLENMARK
  Company Number: ZA-GLENMARK PHARMACEUTICALS-2025GMK104078

PATIENT
  Age: 17 Year
  Sex: Female

DRUGS (1)
  1. POTASSIUM HYDROXIDE [Suspect]
     Active Substance: POTASSIUM HYDROXIDE
     Indication: Molluscum contagiosum
     Route: 061

REACTIONS (2)
  - Necrosis [Unknown]
  - Chemical burn of skin [Unknown]
